FAERS Safety Report 6706835-4 (Version None)
Quarter: 2010Q2

REPORT INFORMATION
  Report Type: 
  Country: None (occurrence: None)
  Receive Date: 20100503
  Receipt Date: 20100422
  Transmission Date: 20101027
  Serious: Yes (Hospitalization)
  Sender: FDA-Public Use
  Company Number: JP-ASTRAZENECA-2010SE19089

PATIENT
  Age: 66 Year
  Sex: Female

DRUGS (7)
  1. CANDESARTAN CILEXETIL [Suspect]
     Indication: HYPERTENSION
     Route: 048
     Dates: start: 20090219
  2. ASPIRIN [Suspect]
     Indication: NASOPHARYNGITIS
     Route: 048
     Dates: start: 20090218, end: 20090224
  3. TACHYSTIN [Suspect]
     Indication: HYPOPARATHYROIDISM
     Route: 048
     Dates: start: 19940101, end: 20090201
  4. TACHYSTIN [Suspect]
     Route: 048
     Dates: start: 20090306
  5. CALCIUM ^SANDOZ^ [Suspect]
     Indication: HYPOPARATHYROIDISM
     Route: 048
     Dates: start: 20000101, end: 20090201
  6. CALCIUM ^SANDOZ^ [Suspect]
     Route: 048
     Dates: start: 20090306
  7. LEVOTHYROXINE SODIUM [Concomitant]
     Indication: HYPOTHYROIDISM
     Route: 048
     Dates: start: 20080601

REACTIONS (2)
  - HYPERCALCAEMIA [None]
  - RENAL FAILURE ACUTE [None]
